FAERS Safety Report 4679907-6 (Version None)
Quarter: 2005Q2

REPORT INFORMATION
  Report Type: 
  Country: None (occurrence: None)
  Receive Date: 20050602
  Receipt Date: 20050523
  Transmission Date: 20051028
  Serious: Yes (Other)
  Sender: FDA-Public Use
  Company Number: AU-GLAXOSMITHKLINE-B0382403A

PATIENT
  Age: 18 Year
  Sex: Female

DRUGS (1)
  1. PANADOL CAPLETS [Suspect]
     Dosage: 12CAPL PER DAY
     Route: 048
     Dates: start: 20050522

REACTIONS (2)
  - INTENTIONAL MISUSE [None]
  - OVERDOSE [None]
